FAERS Safety Report 10922379 (Version 1)
Quarter: 2015Q1

REPORT INFORMATION
  Report Type: Spontaneous
  Country: ES (occurrence: None)
  Receive Date: 20150312
  Receipt Date: 20150312
  Transmission Date: 20150721
  Serious: Yes (Death, Disabling, Other)
  Sender: FDA-Public Use
  Company Number: 2277444

PATIENT
  Age: 64 Year
  Sex: Female

DRUGS (5)
  1. BEVACIZUMAB [Suspect]
     Active Substance: BEVACIZUMAB
     Indication: RECTAL ADENOCARCINOMA
     Dosage: 6 CYCLES (CYCLICAL)
  2. CAPECITABINE. [Suspect]
     Active Substance: CAPECITABINE
     Indication: RECTAL ADENOCARCINOMA
     Dosage: 7 CYCLES (CYCLICAL)
     Dates: end: 201006
  3. OXALIPLATIN. [Suspect]
     Active Substance: OXALIPLATIN
     Indication: RECTAL ADENOCARCINOMA
     Dosage: 7 CYCLES (CYCLICAL)
     Dates: end: 201006
  4. IRINOTECAN HYDROCHLORIDE. [Suspect]
     Active Substance: IRINOTECAN HYDROCHLORIDE
     Indication: RECTAL ADENOCARCINOMA
     Dosage: 6 CYCLES (CYCLICAL)
  5. RALTITREXED DISODIUM [Suspect]
     Active Substance: RALTITREXED
     Indication: RECTAL ADENOCARCINOMA
     Dates: start: 20120306, end: 20120509

REACTIONS (11)
  - Neutropenia [None]
  - Metastases to liver [None]
  - Therapeutic response decreased [None]
  - Rectal adenocarcinoma [None]
  - Metastases to lung [None]
  - Malignant neoplasm progression [None]
  - Hepatic failure [None]
  - Asthenia [None]
  - Diarrhoea [None]
  - Arthralgia [None]
  - Anaemia [None]

NARRATIVE: CASE EVENT DATE: 201012
